FAERS Safety Report 24633135 (Version 1)
Quarter: 2024Q4

REPORT INFORMATION
  Report Type: Spontaneous
  Country: FR (occurrence: FR)
  Receive Date: 20241118
  Receipt Date: 20241118
  Transmission Date: 20250114
  Serious: Yes (Other)
  Sender: PIERRE FABRE MEDICAMENT
  Company Number: FR-PFM-2024-06028

PATIENT
  Sex: Male

DRUGS (1)
  1. PROPRANOLOL HYDROCHLORIDE [Suspect]
     Active Substance: PROPRANOLOL HYDROCHLORIDE
     Indication: Infantile haemangioma
     Dosage: 3 MG/KG PER DAY
     Route: 065

REACTIONS (4)
  - Growth retardation [Not Recovered/Not Resolved]
  - Insulin-like growth factor decreased [Unknown]
  - Product use issue [Unknown]
  - Off label use [Unknown]
